FAERS Safety Report 7493953-9 (Version None)
Quarter: 2011Q2

REPORT INFORMATION
  Report Type: 
  Country: None (occurrence: None)
  Receive Date: 20110520
  Receipt Date: 20110513
  Transmission Date: 20111010
  Serious: Yes (Hospitalization, Other)
  Sender: FDA-Public Use
  Company Number: US-PFIZER INC-2010069693

PATIENT
  Sex: Female
  Weight: 67.6 kg

DRUGS (14)
  1. LYRICA [Interacting]
     Dosage: 50 MG, 1X/DAY
     Route: 048
     Dates: start: 20100530, end: 20100606
  2. ARTHROTEC [Suspect]
     Indication: ARTHRITIS
     Dosage: 75 MG, DAILY
     Route: 048
     Dates: start: 20080101
  3. TOPAMAX [Concomitant]
     Indication: BIPOLAR DISORDER
     Dosage: 150 MG, DAILY
  4. KLONOPIN [Concomitant]
     Indication: BIPOLAR DISORDER
     Dosage: 1 MG, 3X/DAY
  5. LYRICA [Interacting]
     Dosage: 50 MG, 2X/DAY
     Route: 048
     Dates: start: 20100501, end: 20100529
  6. LYRICA [Interacting]
     Indication: NEUROPATHY PERIPHERAL
     Dosage: 50 MG, 3X/DAY
     Route: 048
     Dates: start: 20100401, end: 20100501
  7. NEURONTIN [Suspect]
     Indication: NEUROPATHY PERIPHERAL
     Dosage: 300 MG, 3X/DAY
     Route: 048
     Dates: start: 20090101, end: 20100401
  8. CELEXA [Interacting]
     Dosage: UNK
  9. SPIRIVA [Concomitant]
     Indication: BRONCHITIS CHRONIC
     Dosage: UNK
  10. LYRICA [Interacting]
     Dosage: UNK
  11. KLONOPIN [Concomitant]
     Indication: ANXIETY
  12. CELEXA [Interacting]
     Indication: DEPRESSION
     Dosage: 20 MG, 1X/DAY
  13. NEXIUM [Concomitant]
     Dosage: UNK
  14. TRAZODONE [Concomitant]
     Indication: BIPOLAR DISORDER
     Dosage: 75 MG, 1X/DAY
     Route: 048

REACTIONS (22)
  - VISION BLURRED [None]
  - ABDOMINAL DISTENSION [None]
  - MASS [None]
  - ABDOMINAL PAIN UPPER [None]
  - BONE PAIN [None]
  - INTERVERTEBRAL DISC DISORDER [None]
  - BACK PAIN [None]
  - PUNCTATE KERATITIS [None]
  - LYMPHADENOPATHY [None]
  - BLOOD POTASSIUM DECREASED [None]
  - DIARRHOEA [None]
  - ANAEMIA [None]
  - MUSCULOSKELETAL PAIN [None]
  - HEART RATE DECREASED [None]
  - PAIN IN EXTREMITY [None]
  - BLOOD PRESSURE DECREASED [None]
  - EYE DISORDER [None]
  - DRUG INEFFECTIVE [None]
  - DRUG INTERACTION [None]
  - OSTEOARTHRITIS [None]
  - NODULE [None]
  - FEELING ABNORMAL [None]
